FAERS Safety Report 8323156-7 (Version None)
Quarter: 2012Q1

REPORT INFORMATION
  Report Type: 
  Country: None (occurrence: None)
  Receive Date: 20120315
  Receipt Date: 20110406
  Transmission Date: 20120608
  Serious: No
  Sender: FDA-Public Use
  Company Number: PHHY2011US23669

PATIENT
  Age: 49 Year
  Sex: Female

DRUGS (6)
  1. VITAMIN D [Concomitant]
  2. GILENYA [Suspect]
     Indication: RELAPSING-REMITTING MULTIPLE SCLEROSIS
     Dosage: 0.5 MG, QD, ORAL
     Route: 048
     Dates: start: 20110303
  3. PRAVASTATIN [Concomitant]
  4. FOLIC ACID [Concomitant]
  5. B COMPLE (NICOTINAMIDE, PYRIDOXINE HYDROCHLORIDE, RIBOFLAVIN, THAMINE [Concomitant]
  6. FISH OIL (FISH OIL) [Concomitant]

REACTIONS (3)
  - EYELID OEDEMA [None]
  - HEART RATE DECREASED [None]
  - HYPERHIDROSIS [None]
